FAERS Safety Report 7176934-4 (Version None)
Quarter: 2010Q4

REPORT INFORMATION
  Report Type: 
  Country: None (occurrence: None)
  Receive Date: 20101220
  Receipt Date: 20101209
  Transmission Date: 20110411
  Serious: Yes (Other)
  Sender: FDA-Public Use
  Company Number: US-BAXTER-2010BH024876

PATIENT
  Age: 38 Year
  Sex: Male
  Weight: 63 kg

DRUGS (9)
  1. GAMMAGARD LIQUID [Suspect]
     Indication: IDIOPATHIC THROMBOCYTOPENIC PURPURA
     Route: 042
     Dates: start: 20100927, end: 20100928
  2. WINRHO [Concomitant]
     Indication: IDIOPATHIC THROMBOCYTOPENIC PURPURA
     Route: 042
     Dates: start: 20000101, end: 20100901
  3. ACETAMINOPHEN [Concomitant]
     Indication: PREMEDICATION
     Route: 048
     Dates: start: 20090701
  4. DIPHENHYDRAMINE [Concomitant]
     Indication: PREMEDICATION
     Route: 048
     Dates: start: 20090701
  5. EFFEXOR [Concomitant]
  6. VICODIN [Concomitant]
  7. ZITHROMAX [Concomitant]
  8. PROMETHAZINE [Concomitant]
  9. ANTI-SMOKING AGENTS [Concomitant]

REACTIONS (9)
  - CHILLS [None]
  - HOT FLUSH [None]
  - MIGRAINE [None]
  - NAUSEA [None]
  - PAIN [None]
  - PRURITUS [None]
  - PYREXIA [None]
  - THROAT IRRITATION [None]
  - VOMITING [None]
